FAERS Safety Report 6504790-3 (Version None)
Quarter: 2009Q4

REPORT INFORMATION
  Report Type: 
  Country: None (occurrence: None)
  Receive Date: 20091215
  Receipt Date: 20091201
  Transmission Date: 20100525
  Serious: Yes (Other)
  Sender: FDA-Public Use
  Company Number: US-1171314

PATIENT
  Age: 83 Year
  Sex: Female
  Weight: 51.7101 kg

DRUGS (9)
  1. AZOPT [Suspect]
     Dosage: 2 GTT OU BID OPHTHALMIC
     Route: 047
     Dates: start: 20090801, end: 20091029
  2. XALATAN [Concomitant]
  3. DETROL LA [Concomitant]
  4. CALCIUM [Concomitant]
  5. BONIVA [Concomitant]
  6. LOTREL [Concomitant]
  7. FOLGARD [Concomitant]
  8. TEMAZEPAM [Concomitant]
  9. VITAMIN D [Concomitant]

REACTIONS (6)
  - ASTHENIA [None]
  - BLOOD PRESSURE DECREASED [None]
  - DYSGEUSIA [None]
  - HEADACHE [None]
  - MALAISE [None]
  - VISUAL IMPAIRMENT [None]
